FAERS Safety Report 16199660 (Version 1)
Quarter: 2019Q2

REPORT INFORMATION
  Report Type: Report from Study
  Country: CA (occurrence: CA)
  Receive Date: 20190415
  Receipt Date: 20190415
  Transmission Date: 20190711
  Serious: Yes (Other)
  Sender: FDA-Public Use
  Company Number: CA-HLSUS-2019-CA-000354

PATIENT
  Age: 72 Year
  Sex: Male

DRUGS (2)
  1. CLOZARIL [Suspect]
     Active Substance: CLOZAPINE
     Dosage: 125 MG AT BEDTIME
     Route: 048
     Dates: start: 20180413, end: 20180930
  2. LORAZEPAM. [Concomitant]
     Active Substance: LORAZEPAM
     Dosage: 1 MG THRICE DAILY
     Route: 048

REACTIONS (7)
  - Bruxism [Unknown]
  - Dementia Alzheimer^s type [Unknown]
  - Restlessness [Unknown]
  - Adverse drug reaction [Unknown]
  - Akathisia [Unknown]
  - Aggression [Unknown]
  - Drug ineffective [Unknown]

NARRATIVE: CASE EVENT DATE: 20180930
